FAERS Safety Report 20013292 (Version 1)
Quarter: 2021Q4

REPORT INFORMATION
  Report Type: Spontaneous
  Country: US (occurrence: US)
  Receive Date: 20211029
  Receipt Date: 20211029
  Transmission Date: 20220303
  Serious: Yes (Hospitalization)
  Sender: FDA-Public Use
  Company Number: US-PFIZER INC-202101411510

PATIENT
  Age: 55 Year
  Sex: Male

DRUGS (1)
  1. SIROLIMUS [Suspect]
     Active Substance: SIROLIMUS
     Dosage: UNK

REACTIONS (8)
  - Diarrhoea [Unknown]
  - Vomiting [Unknown]
  - Herpes zoster [Unknown]
  - Dizziness [Unknown]
  - Ill-defined disorder [Unknown]
  - Dehydration [Unknown]
  - Infection [Unknown]
  - Drug ineffective [Unknown]
